FAERS Safety Report 9300400 (Version 2)
Quarter: 2013Q3

REPORT INFORMATION
  Report Type: Spontaneous
  Country: US (occurrence: US)
  Receive Date: 20130521
  Receipt Date: 20130827
  Transmission Date: 20140515
  Serious: Yes (Hospitalization)
  Sender: FDA-Public Use
  Company Number: US-PFIZER INC-2013153585

PATIENT
  Age: 59 Year
  Sex: Male

DRUGS (4)
  1. XALKORI [Suspect]
     Indication: LUNG NEOPLASM MALIGNANT
     Dosage: 250 MG, 2X/DAY
     Route: 048
     Dates: start: 201206
  2. ATENOLOL [Concomitant]
     Indication: TACHYCARDIA
     Dosage: 50 MG, 1X/DAY
  3. TOSSIONEX [Concomitant]
     Indication: COUGH
     Dosage: 5 ML, 2X/DAY
  4. COREG [Concomitant]
     Dosage: 10 MG, 1X/DAY (QD)

REACTIONS (4)
  - Chest pain [Unknown]
  - Tachycardia [Unknown]
  - Loss of consciousness [Unknown]
  - Syncope [Recovered/Resolved]
